FAERS Safety Report 12697151 (Version 1)
Quarter: 2016Q3

REPORT INFORMATION
  Report Type: Spontaneous
  Country: US (occurrence: None)
  Receive Date: 20160829
  Receipt Date: 20160829
  Transmission Date: 20161109
  Serious: No
  Sender: FDA-Public Use
  Company Number: None

PATIENT
  Age: 33 Year
  Sex: Male
  Weight: 147.1 kg

DRUGS (1)
  1. SACUBITRIL/VALSARTAN [Suspect]
     Active Substance: SACUBITRIL\VALSARTAN
     Indication: CARDIAC FAILURE CONGESTIVE
     Dosage: 24/26 MG BID PO
     Route: 048
     Dates: start: 20160720, end: 20160825

REACTIONS (3)
  - Sedation [None]
  - Somnolence [None]
  - Hypotension [None]

NARRATIVE: CASE EVENT DATE: 20160825
